FAERS Safety Report 8830907 (Version 4)
Quarter: 2013Q1

REPORT INFORMATION
  Report Type: Spontaneous
  Country: GB (occurrence: GB)
  Receive Date: 20121009
  Receipt Date: 20130209
  Transmission Date: 20140127
  Serious: Yes (Disabling, Other)
  Sender: FDA-Public Use
  Company Number: GB-MYLANLABS-2012S1020169

PATIENT
  Age: 64 Year
  Sex: Female
  Weight: 48.1 kg

DRUGS (11)
  1. BENDROFLUMETHIAZIDE [Concomitant]
     Indication: PRODUCT USED FOR UNKNOWN INDICATION
     Route: 048
     Dates: start: 20100401, end: 20100429
  2. PARACETAMOL [Concomitant]
     Indication: PAIN
     Route: 048
     Dates: start: 20080129
  3. PROTHIADEN [Concomitant]
     Indication: DEPRESSION
     Route: 048
     Dates: start: 20040727
  4. SENNA [Concomitant]
     Indication: CONSTIPATION
     Route: 048
     Dates: start: 20100205
  5. RANITIDINE [Concomitant]
     Indication: PRODUCT USED FOR UNKNOWN INDICATION
  6. ATORVASTATIN [Suspect]
     Indication: HYPERLIPIDAEMIA
     Dates: start: 20100609
  7. PRAVASTATIN [Suspect]
     Indication: HYPERLIPIDAEMIA
     Route: 048
     Dates: start: 20100301
  8. PRAVASTATIN [Suspect]
     Indication: HYPERLIPIDAEMIA
     Route: 048
     Dates: start: 20100316
  9. SIMVASTATIN [Suspect]
     Indication: HYPERLIPIDAEMIA
     Dates: start: 20100128
  10. SIMVASTATIN [Suspect]
     Indication: HYPERLIPIDAEMIA
     Dates: start: 20100514
  11. AMLODIPINE [Concomitant]
     Indication: BLOOD PRESSURE INCREASED
     Route: 048
     Dates: start: 20100326, end: 20100401

REACTIONS (13)
  - Skin depigmentation [Unknown]
  - Depression [Unknown]
  - Diplopia [Unknown]
  - Ear disorder [Unknown]
  - Pruritus [Not Recovered/Not Resolved]
  - Hepatomegaly [Unknown]
  - Muscle spasms [Not Recovered/Not Resolved]
  - Paraesthesia [Unknown]
  - Local swelling [Unknown]
  - Fatigue [Unknown]
  - Vasodilatation [Unknown]
  - Weight decreased [Not Recovered/Not Resolved]
  - Vision blurred [Unknown]
